FAERS Safety Report 14803355 (Version 1)
Quarter: 2018Q2

REPORT INFORMATION
  Report Type: Spontaneous
  Country: FR (occurrence: FR)
  Receive Date: 20180425
  Receipt Date: 20180425
  Transmission Date: 20180711
  Serious: Yes (Congenital Anomaly)
  Sender: FDA-Public Use
  Company Number: FR-UCBSA-2018017545

PATIENT
  Sex: Female

DRUGS (2)
  1. VIMPAT [Suspect]
     Active Substance: LACOSAMIDE
     Indication: EPILEPSY
     Dosage: 100 MG DAILY DOSE
     Route: 064
     Dates: start: 201612, end: 201703
  2. LAMICTAL [Suspect]
     Active Substance: LAMOTRIGINE
     Indication: EPILEPSY
     Dosage: 250 MG DAILY DOSE
     Route: 064
     Dates: start: 201612, end: 201703

REACTIONS (2)
  - Foetal exposure during pregnancy [Unknown]
  - Gastroschisis [Recovered/Resolved]

NARRATIVE: CASE EVENT DATE: 201612
